FAERS Safety Report 21762146 (Version 1)
Quarter: 2022Q4

REPORT INFORMATION
  Report Type: Spontaneous
  Country: None (occurrence: NL)
  Receive Date: 20221221
  Receipt Date: 20221221
  Transmission Date: 20230113
  Serious: Yes (Hospitalization, Other)
  Sender: FDA-Public Use
  Company Number: NL-Ascend Therapeutics US, LLC-2136058

PATIENT
  Age: 49 Year
  Sex: Female

DRUGS (6)
  1. ESTROGEL [Suspect]
     Active Substance: ESTRADIOL
     Indication: Product used for unknown indication
     Route: 065
     Dates: start: 20221024, end: 2022
  2. ESTROGEL [Suspect]
     Active Substance: ESTRADIOL
  3. ESTRADIOL [Suspect]
     Active Substance: ESTRADIOL
     Route: 065
     Dates: start: 20221024, end: 2022
  4. .ALPHA.-TOCOPHEROL ACETATE\MINERAL OIL\PARAFFIN\PETROLATUM [Suspect]
     Active Substance: .ALPHA.-TOCOPHEROL ACETATE\MINERAL OIL\PARAFFIN\PETROLATUM
     Route: 065
     Dates: start: 20221024
  5. CLOBETASOL PROPIONATE [Suspect]
     Active Substance: CLOBETASOL PROPIONATE
     Route: 065
     Dates: start: 20221024
  6. VAGIFEM [Suspect]
     Active Substance: ESTRADIOL
     Route: 065
     Dates: start: 20221024

REACTIONS (3)
  - Angioedema [Recovering/Resolving]
  - Lip swelling [Recovering/Resolving]
  - Pharyngeal swelling [Recovering/Resolving]

NARRATIVE: CASE EVENT DATE: 20221114
